FAERS Safety Report 11171087 (Version 1)
Quarter: 2015Q2

REPORT INFORMATION
  Report Type: Other
  Country: IT (occurrence: IT)
  Receive Date: 20150608
  Receipt Date: 20150608
  Transmission Date: 20150821
  Serious: Yes (Other)
  Sender: FDA-Public Use
  Company Number: IT-MYLANLABS-2015M1017644

PATIENT

DRUGS (1)
  1. MEMANTINE MYLAN 20 MG FILM-COATED TABLETS [Suspect]
     Active Substance: MEMANTINE
     Indication: VASCULAR DEMENTIA
     Dosage: 20 MG, QD
     Route: 048
     Dates: start: 20150315, end: 20150415

REACTIONS (3)
  - Psychomotor hyperactivity [Unknown]
  - Condition aggravated [Unknown]
  - Therapeutic response changed [Recovering/Resolving]

NARRATIVE: CASE EVENT DATE: 20150415
